FAERS Safety Report 6681625-X (Version None)
Quarter: 2010Q2

REPORT INFORMATION
  Report Type: 
  Country: None (occurrence: None)
  Receive Date: 20100414
  Receipt Date: 20100402
  Transmission Date: 20101027
  Serious: Yes (Hospitalization, Other)
  Sender: FDA-Public Use
  Company Number: US-ELI_LILLY_AND_COMPANY-US201004002345

PATIENT
  Age: 59 Year
  Sex: Female

DRUGS (3)
  1. CYMBALTA [Suspect]
     Indication: DEPRESSION
     Dosage: 60 MG, UNK
     Dates: start: 20080101
  2. GEODON [Concomitant]
  3. COGENTIN [Concomitant]

REACTIONS (11)
  - ASPIRATION [None]
  - ASTHENIA [None]
  - FALL [None]
  - FATIGUE [None]
  - GENERAL PHYSICAL HEALTH DETERIORATION [None]
  - HYPOCALCAEMIA [None]
  - HYPONATRAEMIA [None]
  - MANTLE CELL LYMPHOMA [None]
  - METABOLIC DISORDER [None]
  - NEUTROPENIA [None]
  - WRIST FRACTURE [None]
